FAERS Safety Report 8031403-4 (Version None)
Quarter: 2012Q1

REPORT INFORMATION
  Report Type: 
  Country: None (occurrence: None)
  Receive Date: 20120109
  Receipt Date: 20120103
  Transmission Date: 20120608
  Serious: Yes (Hospitalization)
  Sender: FDA-Public Use
  Company Number: TR-ABBOTT-11P-161-0875905-00

PATIENT
  Sex: Female
  Weight: 64 kg

DRUGS (6)
  1. ANTIPOTASSIUM [Concomitant]
     Indication: RENAL FAILURE CHRONIC
     Route: 048
     Dates: start: 20110907
  2. VIT B COMPLEX [Concomitant]
     Indication: RENAL FAILURE CHRONIC
     Route: 048
     Dates: start: 20060501
  3. ZEMPLAR [Suspect]
     Indication: HYPERPARATHYROIDISM
     Route: 042
     Dates: start: 20110715, end: 20111107
  4. CARNITENE [Concomitant]
     Indication: RENAL FAILURE CHRONIC
     Route: 042
     Dates: start: 20060501
  5. ADALAT CORONA [Concomitant]
     Indication: HYPERTENSION
     Route: 048
     Dates: start: 20110801
  6. PHOS-EX [Concomitant]
     Indication: RENAL FAILURE CHRONIC
     Route: 048
     Dates: start: 20110710

REACTIONS (1)
  - MITRAL VALVE INCOMPETENCE [None]
